FAERS Safety Report 25974311 (Version 1)
Quarter: 2025Q4

REPORT INFORMATION
  Report Type: Spontaneous
  Country: US (occurrence: None)
  Receive Date: 20251028
  Receipt Date: 20251028
  Transmission Date: 20260117
  Serious: Yes (Other)
  Sender: FDA-CTU
  Company Number: None

PATIENT
  Age: 43 Year
  Sex: Female
  Weight: 52.2 kg

DRUGS (6)
  1. XEOMIN [Suspect]
     Active Substance: INCOBOTULINUMTOXINA
     Indication: Therapeutic skin care topical
     Dates: start: 20251025
  2. DYSPORT [Suspect]
     Active Substance: ABOBOTULINUMTOXINA
  3. SUBOXONE [Concomitant]
     Active Substance: BUPRENORPHINE HYDROCHLORIDE\NALOXONE HYDROCHLORIDE
  4. HYDROXYZINE [Concomitant]
     Active Substance: HYDROXYZINE HYDROCHLORIDE
  5. TRAZODONE [Concomitant]
     Active Substance: TRAZODONE HYDROCHLORIDE
  6. ZOLOFT [Concomitant]
     Active Substance: SERTRALINE HYDROCHLORIDE

REACTIONS (11)
  - Panic reaction [None]
  - Palpitations [None]
  - Muscle twitching [None]
  - Restlessness [None]
  - Anxiety [None]
  - Dry throat [None]
  - Dry mouth [None]
  - Sensation of foreign body [None]
  - Insomnia [None]
  - Depression [None]
  - Fear [None]

NARRATIVE: CASE EVENT DATE: 20251025
